FAERS Safety Report 11704735 (Version 1)
Quarter: 2015Q4

REPORT INFORMATION
  Report Type: Report from Study
  Country: DE (occurrence: DE)
  Receive Date: 20151106
  Receipt Date: 20151106
  Transmission Date: 20160304
  Serious: Yes (Death, Hospitalization)
  Sender: FDA-Public Use
  Company Number: DE-CELGENE-062-50794-12012937

PATIENT
  Age: 82 Year
  Sex: Female

DRUGS (1)
  1. VIDAZA [Suspect]
     Active Substance: AZACITIDINE
     Indication: ACUTE MYELOID LEUKAEMIA
     Dosage: 75 MILLIGRAM/SQ. METER
     Route: 058
     Dates: start: 20111004, end: 20111122

REACTIONS (4)
  - Pneumonia [Fatal]
  - General physical health deterioration [Unknown]
  - Hepatic failure [Fatal]
  - Inflammation [Unknown]

NARRATIVE: CASE EVENT DATE: 20111213
